FAERS Safety Report 7111041-8 (Version None)
Quarter: 2010Q4

REPORT INFORMATION
  Report Type: 
  Country: None (occurrence: None)
  Receive Date: 20101118
  Receipt Date: 20101112
  Transmission Date: 20110411
  Serious: Yes (Other)
  Sender: FDA-Public Use
  Company Number: JP-PFIZER INC-2010139034

PATIENT
  Age: 24 Year
  Sex: Male
  Weight: 46.5 kg

DRUGS (3)
  1. BLINDED *NO SUBJECT DRUG [Suspect]
     Indication: FIBROMYALGIA
     Dosage: UNK
     Route: 048
     Dates: start: 20100908
  2. BLINDED *PLACEBO [Suspect]
     Indication: FIBROMYALGIA
     Dosage: UNK
     Route: 048
     Dates: start: 20100908
  3. PREGABALIN [Suspect]
     Indication: FIBROMYALGIA
     Dosage: UNK
     Route: 048
     Dates: start: 20100908

REACTIONS (16)
  - ABDOMINAL PAIN UPPER [None]
  - ACUTE TONSILLITIS [None]
  - APHONIA [None]
  - ASTHENIA [None]
  - BLOOD DISORDER [None]
  - COLD SWEAT [None]
  - CONVULSION [None]
  - EAR PAIN [None]
  - EYE ROLLING [None]
  - FOAMING AT MOUTH [None]
  - HEADACHE [None]
  - HEARING IMPAIRED [None]
  - HYPERTHERMIA [None]
  - LOSS OF CONSCIOUSNESS [None]
  - NAUSEA [None]
  - VERTIGO [None]
